FAERS Safety Report 7960529-6 (Version None)
Quarter: 2011Q4

REPORT INFORMATION
  Report Type: 
  Country: None (occurrence: None)
  Receive Date: 20111206
  Receipt Date: 20111202
  Transmission Date: 20120403
  Serious: Yes (Death, Hospitalization, Other)
  Sender: FDA-Public Use
  Company Number: ZA-ABBOTT-11P-143-0875788-01

PATIENT

DRUGS (20)
  1. LOPERAMIDE HCL [Concomitant]
     Indication: DIARRHOEA
     Dates: start: 20111027
  2. HCT2 [Concomitant]
     Indication: HYPERTENSION
     Route: 048
     Dates: start: 20110501
  3. IBRUPROFEN [Concomitant]
     Indication: BACK PAIN
     Route: 048
     Dates: start: 20101101
  4. TRAMADOL HCL [Concomitant]
     Indication: BONE TUBERCULOSIS
     Route: 048
     Dates: start: 20110707
  5. ACETYLSALICYLIC ACID SRT [Concomitant]
     Indication: HYPERTENSION
     Route: 048
     Dates: start: 20110501
  6. RIFABUTIN [Concomitant]
     Indication: BONE TUBERCULOSIS
     Dates: start: 20110708, end: 20110901
  7. VITAMIN B10 [Concomitant]
     Indication: HYPERTENSION
     Dates: start: 20040101
  8. TRIPTYLINE [Concomitant]
     Indication: INSOMNIA
     Route: 048
     Dates: start: 20110905
  9. ETHAMBUTOL HYDROCHLORIDE [Concomitant]
     Indication: BONE TUBERCULOSIS
     Dates: start: 20110708
  10. LOPINAVIR/RITONAVIR [Suspect]
     Indication: HIV INFECTION
     Route: 048
     Dates: start: 20110615
  11. D4T [Concomitant]
     Indication: HIV INFECTION
     Dates: start: 20110831
  12. ACETAMINOPHEN [Concomitant]
     Indication: BACK PAIN
     Route: 048
     Dates: start: 20101101
  13. PYRIDOXINE HCL [Concomitant]
     Indication: BONE TUBERCULOSIS
     Route: 048
     Dates: start: 20110707
  14. LAMIVUDINE (EPIVIR HBV) [Concomitant]
     Indication: HIV INFECTION
     Dates: start: 20110831
  15. METOCLOPRAMIDE [Concomitant]
     Indication: NAUSEA
     Route: 048
     Dates: start: 20110701
  16. PYRAZINAMIDE [Concomitant]
     Indication: BONE TUBERCULOSIS
     Dates: start: 20110708
  17. AMOXIL [Concomitant]
     Indication: LOWER RESPIRATORY TRACT INFECTION
     Route: 048
     Dates: start: 20111027
  18. FERROUS SULFATE TAB [Concomitant]
     Indication: ANAEMIA
     Route: 048
     Dates: start: 20110908
  19. RIFABUTIN [Concomitant]
     Indication: TUBERCULOSIS
     Route: 048
     Dates: start: 20111013
  20. ISONIAZID [Concomitant]
     Indication: BONE TUBERCULOSIS
     Dates: start: 20110708

REACTIONS (2)
  - ABDOMINAL PAIN [None]
  - DEATH [None]
